FAERS Safety Report 9110995 (Version 1)
Quarter: 2013Q1

REPORT INFORMATION
  Report Type: Spontaneous
  Country: US (occurrence: US)
  Receive Date: 20130219
  Receipt Date: 20130219
  Transmission Date: 20140127
  Serious: No
  Sender: FDA-Public Use
  Company Number: US-BRISTOL-MYERS SQUIBB COMPANY-16915001

PATIENT
  Age: 47 Year
  Sex: Female
  Weight: 68.03 kg

DRUGS (4)
  1. ABATACEPT SUBQ INJECTION 125MG/ML [Suspect]
     Indication: RHEUMATOID ARTHRITIS
     Dosage: 1DF=125MG/ML,ALMOST A YEAR,OFF FOR ALMOST 2 MONTHS,3 INJ?LAST INJECTION: 24AUG2012
     Route: 058
     Dates: start: 2010
  2. METHOTREXATE [Concomitant]
  3. HYDROCODONE [Concomitant]
  4. STEROIDS [Concomitant]
     Route: 042

REACTIONS (1)
  - Insomnia [Not Recovered/Not Resolved]
